FAERS Safety Report 16861531 (Version 3)
Quarter: 2020Q2

REPORT INFORMATION
  Report Type: Spontaneous
  Country: US (occurrence: US)
  Receive Date: 20190927
  Receipt Date: 20200618
  Transmission Date: 20200713
  Serious: No
  Sender: FDA-Public Use
  Company Number: US-KARYOPHARM-2019KPT000472

PATIENT

DRUGS (4)
  1. XPOVIO [Suspect]
     Active Substance: SELINEXOR
     Indication: PLASMA CELL MYELOMA
     Dosage: 80 MG, 2X/WEEK
     Route: 048
     Dates: start: 20190821
  2. ONDANSETRON HCL [Concomitant]
     Active Substance: ONDANSETRON HYDROCHLORIDE
     Indication: NAUSEA
  3. ONDANSETRON HCL [Concomitant]
     Active Substance: ONDANSETRON HYDROCHLORIDE
     Indication: VOMITING
  4. XPOVIO [Suspect]
     Active Substance: SELINEXOR
     Dosage: 20 MG, 2X/WEEK
     Route: 048
     Dates: end: 2020

REACTIONS (7)
  - Vomiting [Recovered/Resolved]
  - Constipation [Unknown]
  - Taste disorder [Unknown]
  - Decreased appetite [Unknown]
  - Weight decreased [Unknown]
  - Asthenia [Unknown]
  - Nausea [Unknown]

NARRATIVE: CASE EVENT DATE: 20190825
